FAERS Safety Report 20602379 (Version 1)
Quarter: 2022Q1

REPORT INFORMATION
  Report Type: Spontaneous
  Country: US (occurrence: None)
  Receive Date: 20220316
  Receipt Date: 20220316
  Transmission Date: 20220424
  Serious: Yes (unspecified)
  Sender: FDA-Public Use
  Company Number: None

PATIENT
  Age: 68 Year
  Sex: Female
  Weight: 56.25 kg

DRUGS (1)
  1. SUTAB [Suspect]
     Active Substance: MAGNESIUM SULFATE\POTASSIUM CHLORIDE\SODIUM SULFATE
     Indication: Colonoscopy
     Dosage: OTHER QUANTITY : 24 TABLET(S);?FREQUENCY : AS NEEDED;?
     Route: 048
     Dates: start: 20220315, end: 20220316

REACTIONS (2)
  - Pruritus [None]
  - Pruritus [None]

NARRATIVE: CASE EVENT DATE: 20220315
